APPROVED DRUG PRODUCT: DIPHENHYDRAMINE HYDROCHLORIDE
Active Ingredient: DIPHENHYDRAMINE HYDROCHLORIDE
Strength: 25MG
Dosage Form/Route: CAPSULE;ORAL
Application: A089488 | Product #001
Applicant: SUN PHARMACEUTICAL INDUSTRIES INC
Approved: Jan 2, 1987 | RLD: No | RS: No | Type: DISCN